FAERS Safety Report 7320657-5 (Version None)
Quarter: 2011Q1

REPORT INFORMATION
  Report Type: 
  Country: None (occurrence: None)
  Receive Date: 20110215
  Receipt Date: 20110203
  Transmission Date: 20110831
  Serious: Yes (Other)
  Sender: FDA-Public Use
  Company Number: DSA_44533_2010

PATIENT
  Sex: Female

DRUGS (5)
  1. WELLBUTRIN [Suspect]
     Indication: PRODUCT USED FOR UNKNOWN INDICATION
     Dosage: (300 MG DAILY ORAL), (150 MG DAILY ORAL)
     Route: 048
  2. ISENTRESS [Suspect]
     Indication: HIV INFECTION
     Dosage: (400 MG DAILY ORAL)
     Route: 048
  3. REYATAZ [Suspect]
     Indication: HIV INFECTION
     Dosage: (200 MG DAILY ORAL)
     Route: 048
  4. DOCTRAZODONE (DOC TRAZODONE-TRAZODONE) [Suspect]
     Indication: PRODUCT USED FOR UNKNOWN INDICATION
     Dosage: (100 MG DAILY ORAL)
     Route: 048
  5. TRUVADA [Suspect]
     Indication: HIV INFECTION
     Dosage: (DF ORAL)
     Route: 048

REACTIONS (3)
  - PREGNANCY [None]
  - DRUG EXPOSURE DURING PREGNANCY [None]
  - ABORTION SPONTANEOUS [None]
